FAERS Safety Report 8338206-1 (Version None)
Quarter: 2012Q2

REPORT INFORMATION
  Report Type: 
  Country: None (occurrence: None)
  Receive Date: 20120504
  Receipt Date: 20120426
  Transmission Date: 20120825
  Serious: Yes (Other)
  Sender: FDA-Public Use
  Company Number: US-ROXANE LABORATORIES, INC.-2012-RO-01143RO

PATIENT
  Age: 54 Year
  Sex: Male

DRUGS (5)
  1. LEVETIRACETAM [Suspect]
  2. PAROXETINE [Suspect]
  3. TRAZODONE HCL [Suspect]
  4. AMBIEN CR [Suspect]
     Dosage: 12.5 MG
  5. GABAPENTIN [Suspect]

REACTIONS (1)
  - SOMNAMBULISM [None]
